FAERS Safety Report 24065770 (Version 2)
Quarter: 2024Q3

REPORT INFORMATION
  Report Type: Spontaneous
  Country: BE (occurrence: BE)
  Receive Date: 20240709
  Receipt Date: 20240830
  Transmission Date: 20241016
  Serious: Yes (Other)
  Sender: BRISTOL MYERS SQUIBB
  Company Number: BE-BRISTOL-MYERS SQUIBB COMPANY-2024-102594

PATIENT
  Age: 54 Year
  Sex: Male

DRUGS (1)
  1. ORENCIA [Suspect]
     Active Substance: ABATACEPT
     Indication: Product used for unknown indication
     Dosage: ROUTE: INJECTION

REACTIONS (2)
  - Injury associated with device [Unknown]
  - Syringe issue [Unknown]
